FAERS Safety Report 24168352 (Version 1)
Quarter: 2024Q3

REPORT INFORMATION
  Report Type: Spontaneous
  Country: US (occurrence: None)
  Receive Date: 20240802
  Receipt Date: 20240802
  Transmission Date: 20241017
  Serious: Yes (Hospitalization)
  Sender: Public
  Company Number: None

PATIENT
  Age: 73 Year
  Sex: Female
  Weight: 51.6 kg

DRUGS (4)
  1. RITUXAN [Suspect]
     Active Substance: RITUXIMAB
  2. CYTARABINE [Suspect]
     Active Substance: CYTARABINE
  3. OXALIPLATIN [Suspect]
     Active Substance: OXALIPLATIN
  4. YESCARTA [Suspect]
     Active Substance: AXICABTAGENE CILOLEUCEL

REACTIONS (15)
  - Acute respiratory failure [None]
  - Cardiac failure [None]
  - Cytokine release syndrome [None]
  - C-reactive protein increased [None]
  - Serum ferritin increased [None]
  - Somnolence [None]
  - Depressed level of consciousness [None]
  - Immune effector cell-associated neurotoxicity syndrome [None]
  - Pulmonary oedema [None]
  - Hypertriglyceridaemia [None]
  - Renal failure [None]
  - Delirium [None]
  - Viraemia [None]
  - Autoimmune haemolytic anaemia [None]
  - Nervous system disorder [None]

NARRATIVE: CASE EVENT DATE: 20240125
